FAERS Safety Report 8425501-0 (Version None)
Quarter: 2012Q2

REPORT INFORMATION
  Report Type: 
  Country: None (occurrence: None)
  Receive Date: 20120611
  Receipt Date: 20120601
  Transmission Date: 20120825
  Serious: Yes (Other)
  Sender: FDA-Public Use
  Company Number: US-US-EMD SERONO, INC.-7137582

PATIENT
  Sex: Female
  Weight: 55 kg

DRUGS (4)
  1. REBIF [Suspect]
     Indication: MULTIPLE SCLEROSIS
     Route: 058
     Dates: start: 20080604, end: 20120301
  2. LIDALO [Concomitant]
     Indication: BLOOD CHOLESTEROL ABNORMAL
  3. BACLOFEN [Concomitant]
     Indication: PAIN
  4. PRILOSEC [Concomitant]
     Indication: PRODUCT USED FOR UNKNOWN INDICATION

REACTIONS (10)
  - PAIN [None]
  - PYREXIA [None]
  - MYOCARDIAL INFARCTION [None]
  - RAYNAUD'S PHENOMENON [None]
  - GLAUCOMA [None]
  - SCLERODERMA [None]
  - INJECTION SITE ERYTHEMA [None]
  - CORONARY ARTERY OCCLUSION [None]
  - NAUSEA [None]
  - INFLUENZA LIKE ILLNESS [None]
